FAERS Safety Report 8388561-1 (Version None)
Quarter: 2012Q2

REPORT INFORMATION
  Report Type: 
  Country: None (occurrence: None)
  Receive Date: 20120525
  Receipt Date: 20120518
  Transmission Date: 20120825
  Serious: Yes (Hospitalization)
  Sender: FDA-Public Use
  Company Number: GB-MEDIMMUNE-MEDI-0015307

PATIENT
  Age: 5 Month
  Sex: Male
  Weight: 6 kg

DRUGS (5)
  1. PANCREATIN TRIPLE STRENGTH CAP [Concomitant]
     Indication: PANCREATIC ENZYMES
     Dosage: ONE CAPSULE PRN WITH FEED
     Route: 048
  2. SYNAGIS [Suspect]
     Indication: ANTIVIRAL PROPHYLAXIS
     Dosage: VARIABLE DOSES TWO PREVIOUS INJECTIONS(71 MG, VARIABLE DOSES TWO PREVIOUS INJECTIONS
     Route: 030
  3. AQUDEK [Concomitant]
     Indication: VITAMIN SUPPLEMENTATION
     Route: 048
  4. FLUCOXACILLIN [Concomitant]
     Indication: INFECTION PROPHYLAXIS
  5. CIMETIDINE [Concomitant]
     Indication: MINERAL SUPPLEMENTATION
     Route: 048

REACTIONS (2)
  - LOWER RESPIRATORY TRACT INFECTION [None]
  - RESPIRATORY SYNCYTIAL VIRUS BRONCHIOLITIS [None]
